FAERS Safety Report 11311826 (Version 1)
Quarter: 2015Q3

REPORT INFORMATION
  Report Type: Spontaneous
  Country: US (occurrence: None)
  Receive Date: 20150723
  Receipt Date: 20150723
  Transmission Date: 20151125
  Serious: Yes (Other)
  Sender: FDA-Public Use
  Company Number: US-2015-VAL000474

PATIENT
  Age: 64 Year
  Sex: Female

DRUGS (8)
  1. PROCARDIA [Suspect]
     Active Substance: NIFEDIPINE
     Indication: PRODUCT USED FOR UNKNOWN INDICATION
  2. DIOVAN [Suspect]
     Active Substance: VALSARTAN
     Indication: PRODUCT USED FOR UNKNOWN INDICATION
  3. NORVASC [Suspect]
     Active Substance: AMLODIPINE BESYLATE
     Indication: PRODUCT USED FOR UNKNOWN INDICATION
  4. POTASSIUM [Concomitant]
     Active Substance: POTASSIUM
  5. LORAZEPAM. [Concomitant]
     Active Substance: LORAZEPAM
  6. LOPRESSOR [Suspect]
     Active Substance: METOPROLOL TARTRATE
     Indication: PRODUCT USED FOR UNKNOWN INDICATION
  7. TENORMIN [Concomitant]
     Active Substance: ATENOLOL
  8. AMLODIPINE BESYLATE AND BENAZEPRIL HCL (AMLODIPINE BESYLATE AND BENAZEPRIL HCL) (AMLODIPINE BESILATE, BENAZEPRIL HYDROCLORIDE) [Suspect]
     Active Substance: AMLODIPINE BESYLATE\BENAZEPRIL HYDROCHLORIDE
     Indication: PRODUCT USED FOR UNKNOWN INDICATION

REACTIONS (5)
  - Blood pressure inadequately controlled [None]
  - Headache [None]
  - Blood pressure increased [None]
  - Drug ineffective [None]
  - Fluid retention [None]
